FAERS Safety Report 4471376-4 (Version None)
Quarter: 2004Q4

REPORT INFORMATION
  Report Type: 
  Country: None (occurrence: None)
  Receive Date: 20041006
  Receipt Date: 20040928
  Transmission Date: 20050328
  Serious: Yes (Hospitalization)
  Sender: FDA-Public Use
  Company Number: 231317K04USA

PATIENT
  Age: 69 Year
  Sex: Male

DRUGS (4)
  1. REBIF [Suspect]
     Indication: MULTIPLE SCLEROSIS
     Dates: start: 20030501
  2. BETA BLOCKER (BETA BLOCKING AGENTS) [Concomitant]
  3. ASPIRIN [Concomitant]
  4. BACLOFEN [Suspect]

REACTIONS (1)
  - MYOCARDIAL INFARCTION [None]
